FAERS Safety Report 8494968-4 (Version None)
Quarter: 2012Q3

REPORT INFORMATION
  Report Type: 
  Country: None (occurrence: None)
  Receive Date: 20120709
  Receipt Date: 20120704
  Transmission Date: 20120928
  Serious: Yes (Other)
  Sender: FDA-Public Use
  Company Number: CA-BRISTOL-MYERS SQUIBB COMPANY-16456543

PATIENT
  Age: 65 Year
  Sex: Female

DRUGS (11)
  1. CALCIUM [Concomitant]
  2. PREDNISONE [Concomitant]
  3. SYNTHROID [Concomitant]
  4. ORENCIA [Suspect]
     Indication: RHEUMATOID ARTHRITIS
     Dosage: LAST DOSE: 9MAR12,10MAY12 (1L66305 EXP SEP14) INF 5 2B69530 SE2014
     Route: 042
     Dates: start: 20120210
  5. ZOPICLONE [Concomitant]
  6. VITAMIN D [Concomitant]
  7. VITAMIN B-12 [Concomitant]
  8. FOLIC ACID [Concomitant]
  9. METOPROLOL [Concomitant]
  10. REPLAVITE [Concomitant]
  11. VITAMIN A [Concomitant]

REACTIONS (8)
  - DECREASED APPETITE [None]
  - THROMBOSIS [None]
  - HYPOTENSION [None]
  - SYNOVIAL CYST [None]
  - GASTROENTERITIS VIRAL [None]
  - INFUSION SITE SWELLING [None]
  - FATIGUE [None]
  - INFUSION SITE PAIN [None]
